FAERS Safety Report 20968371 (Version 27)
Quarter: 2025Q4

REPORT INFORMATION
  Report Type: Report from Study
  Country: US (occurrence: US)
  Receive Date: 20220616
  Receipt Date: 20251217
  Transmission Date: 20260117
  Serious: Yes (Hospitalization, Other)
  Sender: TAKEDA
  Company Number: US-SHIRE-US202004963

PATIENT
  Age: 75 Year
  Sex: Female

DRUGS (10)
  1. LANADELUMAB [Suspect]
     Active Substance: LANADELUMAB
     Indication: Immune system disorder
     Dosage: UNK UNK, Q4WEEKS
     Dates: start: 20190217
  2. LANADELUMAB [Suspect]
     Active Substance: LANADELUMAB
     Dosage: 300 MILLIGRAM, Q2WEEKS
     Dates: start: 20190227
  3. LANADELUMAB [Suspect]
     Active Substance: LANADELUMAB
     Dosage: 300 MILLIGRAM, Q2WEEKS
     Dates: start: 20190228
  4. LANADELUMAB [Suspect]
     Active Substance: LANADELUMAB
     Dosage: 300 MILLIGRAM, Q2WEEKS
     Dates: start: 201902
  5. LANADELUMAB [Suspect]
     Active Substance: LANADELUMAB
     Dosage: 2 MILLILITER, Q4WEEKS
  6. LANADELUMAB [Suspect]
     Active Substance: LANADELUMAB
     Dosage: 300 MILLIGRAM, Q4WEEKS
  7. LANADELUMAB [Suspect]
     Active Substance: LANADELUMAB
     Dosage: UNK, UNK Q4WEEKS
  8. EPINEPHRINE [Concomitant]
     Active Substance: EPINEPHRINE
     Dosage: UNK
  9. ICATIBANT [Concomitant]
     Active Substance: ICATIBANT ACETATE
     Dosage: UNK
  10. ICATIBANT ACETATE [Concomitant]
     Active Substance: ICATIBANT ACETATE
     Dosage: UNK

REACTIONS (11)
  - Urinary tract infection [Unknown]
  - Escherichia infection [Unknown]
  - Device related infection [Unknown]
  - Loss of consciousness [Unknown]
  - Weight increased [Unknown]
  - Joint swelling [Unknown]
  - Dysphagia [Unknown]
  - Weight decreased [Unknown]
  - Fall [Unknown]
  - Blood pressure decreased [Unknown]
  - Hereditary angioedema [Unknown]

NARRATIVE: CASE EVENT DATE: 20230301
